FAERS Safety Report 6378560-3 (Version None)
Quarter: 2009Q3

REPORT INFORMATION
  Report Type: 
  Country: None (occurrence: None)
  Receive Date: 20090928
  Receipt Date: 20090916
  Transmission Date: 20100115
  Serious: Yes (Death, Life-Threatening, Hospitalization)
  Sender: FDA-Public Use
  Company Number: JP-JNJFOC-20090605020

PATIENT
  Sex: Female
  Weight: 43 kg

DRUGS (9)
  1. REMICADE [Suspect]
     Dosage: 24 INFUSIONA TOTAL
     Route: 042
     Dates: start: 20060206, end: 20090519
  2. REMICADE [Suspect]
     Indication: RHEUMATOID ARTHRITIS
     Dosage: INITIATED APPROXIMATELY 2 1/2 YEARS EARLIER
     Route: 042
     Dates: start: 20060206, end: 20090519
  3. RHEUMATREX [Suspect]
     Indication: RHEUMATOID ARTHRITIS
     Route: 048
  4. PREDNISOLONE [Suspect]
     Indication: RHEUMATOID ARTHRITIS
     Route: 048
  5. PREDNISONE [Suspect]
     Indication: DRUG USE FOR UNKNOWN INDICATION
  6. ISCOTIN [Concomitant]
     Route: 048
  7. RIMACTANE [Concomitant]
     Route: 048
  8. ESANBUTOL [Concomitant]
     Route: 048
  9. PYDOXAL [Concomitant]
     Route: 048

REACTIONS (3)
  - ALTERED STATE OF CONSCIOUSNESS [None]
  - DISSEMINATED TUBERCULOSIS [None]
  - TOXIC EPIDERMAL NECROLYSIS [None]
